FAERS Safety Report 4934852-3 (Version None)
Quarter: 2006Q1

REPORT INFORMATION
  Report Type: 
  Country: None (occurrence: None)
  Receive Date: 20060302
  Receipt Date: 20060217
  Transmission Date: 20060701
  Serious: Yes (Hospitalization)
  Sender: FDA-Public Use
  Company Number: CERZ-11143

PATIENT
  Age: 9 Year
  Sex: Male
  Weight: 22 kg

DRUGS (2)
  1. CEREZYME [Suspect]
     Indication: GAUCHER'S DISEASE
     Dosage: 1200 UNITS Q2WKS IV
     Route: 042
     Dates: start: 19980313
  2. CEREZYME [Suspect]

REACTIONS (1)
  - BRONCHITIS [None]
